FAERS Safety Report 7815636-5 (Version None)
Quarter: 2011Q4

REPORT INFORMATION
  Report Type: 
  Country: None (occurrence: None)
  Receive Date: 20111005
  Receipt Date: 20110927
  Transmission Date: 20120403
  Serious: Yes (Other)
  Sender: FDA-Public Use
  Company Number: 2010026943

PATIENT
  Age: 66 Year
  Sex: Female
  Weight: 168 kg

DRUGS (36)
  1. HIZENTRA [Suspect]
  2. HIZENTRA [Suspect]
  3. HIZENTRA [Suspect]
  4. HIZENTRA [Suspect]
  5. SODIUM BICARBONATE (SODIUM BICARBONATE) [Concomitant]
  6. FLUCONAZOLE [Concomitant]
  7. BACTRIM [Concomitant]
  8. DOMPERIDONE (DOMPERIDONE) [Concomitant]
  9. UROXATRAL [Concomitant]
  10. LASIX [Concomitant]
  11. HIZENTRA [Suspect]
  12. CLARITHROMYCIN [Concomitant]
  13. PRILOSEC [Concomitant]
  14. POTASSIUM CHLORIDE (POTASSIUM CHLORIDE) [Concomitant]
  15. HIZENTRA [Suspect]
  16. LIPITOR [Concomitant]
  17. HIZENTRA [Suspect]
  18. HIZENTRA [Suspect]
  19. ALPRAZOLAM EXTENDED-RELEASE [Concomitant]
  20. CALTRATE (CALCIUM CARBONATE) [Concomitant]
  21. IBUPROFEN [Concomitant]
  22. ROPINIROLE [Concomitant]
  23. HIZENTRA [Suspect]
  24. HIZENTRA [Suspect]
  25. HIZENTRA [Suspect]
  26. HIZENTRA [Suspect]
  27. VALTURNA [Suspect]
     Dosage: (300/320 MG DAILY)
  28. AMOXICILLIN (AMOXICILLIN) [Concomitant]
  29. FOLBIC (ACCOMIN MULTIVITAMIN) [Concomitant]
  30. HIZENTRA [Suspect]
     Indication: IMMUNODEFICIENCY COMMON VARIABLE
     Dosage: SEE IMAGE
     Route: 058
     Dates: start: 20110919, end: 20110919
  31. HIZENTRA [Suspect]
     Indication: SELECTIVE IGA IMMUNODEFICIENCY
     Dosage: SEE IMAGE
     Route: 058
     Dates: start: 20110919, end: 20110919
  32. HIZENTRA [Suspect]
     Indication: IMMUNODEFICIENCY COMMON VARIABLE
     Dosage: SEE IMAGE
     Route: 058
     Dates: start: 20101108
  33. HIZENTRA [Suspect]
     Indication: SELECTIVE IGA IMMUNODEFICIENCY
     Dosage: SEE IMAGE
     Route: 058
     Dates: start: 20101108
  34. HIZENTRA [Suspect]
  35. HIZENTRA [Suspect]
  36. DIOVAN [Concomitant]

REACTIONS (5)
  - BRONCHITIS [None]
  - HYPOTENSION [None]
  - NAUSEA [None]
  - BLOOD SODIUM DECREASED [None]
  - BLOOD SODIUM INCREASED [None]
